FAERS Safety Report 5572259-9 (Version None)
Quarter: 2007Q4

REPORT INFORMATION
  Report Type: 
  Country: None (occurrence: None)
  Receive Date: 20071221
  Receipt Date: 20071210
  Transmission Date: 20080405
  Serious: Yes (Other)
  Sender: FDA-Public Use
  Company Number: US-PFIZER INC-2007104556

PATIENT
  Age: 65 Year
  Sex: Female

DRUGS (6)
  1. LYRICA [Suspect]
     Indication: DIABETIC NEUROPATHY
  2. BACLOFEN [Suspect]
  3. ULTRAM [Suspect]
  4. SIMVASTATIN [Concomitant]
  5. FOSAMAX [Concomitant]
  6. BENICAR [Concomitant]

REACTIONS (3)
  - RENAL FAILURE [None]
  - SYNCOPE [None]
  - THYROID NEOPLASM [None]
